FAERS Safety Report 8329448-X (Version None)
Quarter: 2012Q2

REPORT INFORMATION
  Report Type: 
  Country: None (occurrence: None)
  Receive Date: 20120502
  Receipt Date: 20120419
  Transmission Date: 20120825
  Serious: Yes (Other)
  Sender: FDA-Public Use
  Company Number: GB-ROCHE-1061477

PATIENT
  Sex: Female

DRUGS (2)
  1. MABTHERA [Suspect]
     Indication: PRODUCT USED FOR UNKNOWN INDICATION
     Dates: start: 20090115
  2. METHOTREXATE [Concomitant]
     Dates: start: 20020301

REACTIONS (2)
  - MALIGNANT MELANOMA IN SITU [None]
  - MALIGNANT MELANOMA [None]
